FAERS Safety Report 13538526 (Version 2)
Quarter: 2017Q3

REPORT INFORMATION
  Report Type: Spontaneous
  Country: US (occurrence: US)
  Receive Date: 20170512
  Receipt Date: 20170809
  Transmission Date: 20171127
  Serious: Yes (Hospitalization)
  Sender: FDA-Public Use
  Company Number: US-ELI_LILLY_AND_COMPANY-US201705000186

PATIENT
  Sex: Male

DRUGS (2)
  1. TALTZ [Suspect]
     Active Substance: IXEKIZUMAB
     Indication: PSORIASIS
     Dosage: 160 MG, LOADING DOSE
     Route: 058
  2. TALTZ [Suspect]
     Active Substance: IXEKIZUMAB
     Dosage: 80 MG, 2/W
     Route: 058
     Dates: start: 20170426, end: 201706

REACTIONS (12)
  - Psoriasis [Not Recovered/Not Resolved]
  - Constipation [Unknown]
  - Intestinal obstruction [Unknown]
  - Haematochezia [Not Recovered/Not Resolved]
  - Mucous stools [Not Recovered/Not Resolved]
  - Colitis [Unknown]
  - Haemorrhoids [Unknown]
  - Hypersensitivity [Not Recovered/Not Resolved]
  - Large intestinal ulcer [Unknown]
  - Abdominal pain [Unknown]
  - Haemoptysis [Recovered/Resolved]
  - Arthropod bite [Not Recovered/Not Resolved]
